FAERS Safety Report 16723022 (Version 1)
Quarter: 2019Q3

REPORT INFORMATION
  Report Type: Spontaneous
  Country: US (occurrence: US)
  Receive Date: 20190821
  Receipt Date: 20190821
  Transmission Date: 20191005
  Serious: No
  Sender: FDA-Public Use
  Company Number: US-AUROBINDO-AUR-APL-2019-003487

PATIENT

DRUGS (1)
  1. TERBINAFINE HYDROCHLORIDE TABLETS 250MG [Suspect]
     Active Substance: TERBINAFINE HYDROCHLORIDE
     Indication: PARONYCHIA
     Dosage: 1 DOSAGE FORM, DAILY
     Route: 065
     Dates: start: 20180901, end: 201811

REACTIONS (1)
  - Drug ineffective [Unknown]
